FAERS Safety Report 10178492 (Version 2)
Quarter: 2014Q2

REPORT INFORMATION
  Report Type: Spontaneous
  Country: DE (occurrence: DE)
  Receive Date: 20140519
  Receipt Date: 20140609
  Transmission Date: 20141212
  Serious: Yes (Other)
  Sender: FDA-Public Use
  Company Number: DE-JNJFOC-20140507872

PATIENT
  Sex: Female
  Weight: 57 kg

DRUGS (6)
  1. XARELTO [Suspect]
     Indication: CEREBROVASCULAR ACCIDENT PROPHYLAXIS
     Route: 048
     Dates: start: 20140128
  2. XARELTO [Suspect]
     Indication: ATRIAL FIBRILLATION
     Route: 048
     Dates: start: 20140128
  3. MULTAQ [Concomitant]
     Route: 065
  4. CANDESARTAN W/HYDROCHLOROTHIAZIDE [Concomitant]
     Route: 065
  5. PANTOPRAZOLE [Concomitant]
     Route: 065
  6. SPIRIVA [Concomitant]
     Route: 065

REACTIONS (9)
  - Skin exfoliation [Unknown]
  - Skin haemorrhage [Unknown]
  - Pruritus generalised [Unknown]
  - Scratch [Unknown]
  - Burning sensation [Unknown]
  - Muscular weakness [Unknown]
  - Swelling face [Unknown]
  - Rash [Unknown]
  - Scab [Unknown]
